FAERS Safety Report 5079044-5 (Version None)
Quarter: 2006Q3

REPORT INFORMATION
  Report Type: 
  Country: None (occurrence: None)
  Receive Date: 20060809
  Receipt Date: 20060725
  Transmission Date: 20061208
  Serious: Yes (Hospitalization)
  Sender: FDA-Public Use
  Company Number: IND-AE-06-SAN-029

PATIENT
  Age: 74 Year
  Sex: Male
  Weight: 88.905 kg

DRUGS (20)
  1. SANCTURA [Suspect]
     Dosage: 20MG -BID - ORAL
     Route: 048
     Dates: start: 20060201, end: 20060301
  2. SANCTURA [Suspect]
     Dosage: 20MG - QD - ORAL
     Route: 048
     Dates: start: 20060301, end: 20060501
  3. PROTONIX [Concomitant]
  4. COREG [Concomitant]
  5. POTASSIUM CHLORIDE [Concomitant]
  6. FUROSEMIDE [Concomitant]
  7. PREDNISONE [Concomitant]
  8. ASPIRIN [Concomitant]
  9. ALLOPURINOL [Concomitant]
  10. MUCINEX [Concomitant]
  11. DIOVAN [Concomitant]
  12. RESTORIL [Concomitant]
  13. XANAX [Concomitant]
  14. COLCHICINE [Concomitant]
  15. HISTUSSIN HC [Concomitant]
  16. PROMETHAZINE [Concomitant]
  17. LEVOTHYROXINE SODIUM [Concomitant]
  18. SYSTANE [Concomitant]
  19. IPRATROPIUM BROMIDE [Concomitant]
  20. ALBUTEROL [Concomitant]

REACTIONS (4)
  - BLADDER DISCOMFORT [None]
  - FATIGUE [None]
  - HEART RATE IRREGULAR [None]
  - PNEUMONIA ASPIRATION [None]
